FAERS Safety Report 8974273 (Version 1)
Quarter: 2012Q4

REPORT INFORMATION
  Report Type: Spontaneous
  Country: US (occurrence: None)
  Receive Date: 20121212
  Receipt Date: 20121212
  Transmission Date: 20130627
  Serious: Yes (Hospitalization)
  Sender: FDA-Public Use
  Company Number: SP05846

PATIENT
  Age: 55 Year
  Sex: Female
  Weight: 61.24 kg

DRUGS (4)
  1. XIFAXAN [Suspect]
     Route: 048
     Dates: start: 2011
  2. LACTULOSE [Concomitant]
  3. CARAFATE [Concomitant]
  4. SALT [Concomitant]

REACTIONS (8)
  - Diarrhoea [None]
  - Nausea [None]
  - Retching [None]
  - Dehydration [None]
  - Ammonia increased [None]
  - Hyperglycaemia [None]
  - Blood creatinine increased [None]
  - Malaise [None]
